FAERS Safety Report 7529583-X (Version None)
Quarter: 2011Q2

REPORT INFORMATION
  Report Type: 
  Country: None (occurrence: None)
  Receive Date: 20110607
  Receipt Date: 20050810
  Transmission Date: 20111010
  Serious: Yes (Hospitalization)
  Sender: FDA-Public Use
  Company Number: PHFR2005GB02718

PATIENT
  Sex: Female

DRUGS (2)
  1. CLOZARIL [Suspect]
     Indication: SCHIZOPHRENIA
     Dosage: 450MG PER DAY
     Route: 048
     Dates: start: 20040102
  2. CITALOPRAM HYDROBROMIDE [Concomitant]
     Route: 048

REACTIONS (4)
  - FATIGUE [None]
  - LYMPHOCYTE COUNT DECREASED [None]
  - HEMIPARESIS [None]
  - BLOOD SODIUM DECREASED [None]
